FAERS Safety Report 13139423 (Version 1)
Quarter: 2017Q1

REPORT INFORMATION
  Report Type: Spontaneous
  Country: BR (occurrence: BR)
  Receive Date: 20170123
  Receipt Date: 20170123
  Transmission Date: 20170428
  Serious: Yes (Other)
  Sender: FDA-Public Use
  Company Number: BR-PFIZER INC-2017025617

PATIENT
  Age: 70 Year
  Sex: Male

DRUGS (1)
  1. ADVIL [Suspect]
     Active Substance: IBUPROFEN
     Indication: MYALGIA
     Dosage: 400 MG, 2X/DAY (ONE AFTER LUNCH AND ANOTHER AFTER DINNER)
     Route: 048

REACTIONS (14)
  - Vasodilatation [Unknown]
  - Back pain [Unknown]
  - Inguinal hernia [Unknown]
  - Malaise [Unknown]
  - Abdominal distension [Unknown]
  - Gastritis [Unknown]
  - Gastrointestinal sounds abnormal [Unknown]
  - Vomiting [Unknown]
  - Abdominal pain upper [Unknown]
  - Diarrhoea [Unknown]
  - Peripheral vascular disorder [Unknown]
  - Varicose vein [Unknown]
  - Dysentery [Unknown]
  - Feeling hot [Unknown]
